FAERS Safety Report 26007729 (Version 2)
Quarter: 2025Q4

REPORT INFORMATION
  Report Type: Report from Study
  Country: JP (occurrence: JP)
  Receive Date: 20251106
  Receipt Date: 20251209
  Transmission Date: 20260117
  Serious: Yes (Other)
  Sender: ABBVIE
  Company Number: JP-TAKEDA-2020TJP008623

PATIENT
  Age: 78 Year
  Sex: Male
  Weight: 57.2 kg

DRUGS (3)
  1. LEUPROLIDE ACETATE [Suspect]
     Active Substance: LEUPROLIDE ACETATE
     Indication: Bulbospinal muscular atrophy congenital
     Dosage: 11.25 MILLIGRAM, Q3MONTHS
     Route: 058
     Dates: start: 20180119, end: 20230914
  2. LEUPROLIDE ACETATE [Suspect]
     Active Substance: LEUPROLIDE ACETATE
     Dosage: 11.25 MILLIGRAM, Q3MONTHS
     Route: 058
     Dates: start: 20250206, end: 20250206
  3. ENSURE [Concomitant]
     Active Substance: AMINO ACIDS\DEXTROSE\ELECTROLYTES NOS\SOYBEAN OIL\VITAMINS
     Indication: Bulbospinal muscular atrophy congenital
     Dosage: 250 MILLILITER
     Route: 065
     Dates: start: 20210624

REACTIONS (11)
  - Compression fracture [Recovered/Resolved]
  - Spinal osteoarthritis [Recovering/Resolving]
  - Bronchitis chronic [Recovering/Resolving]
  - Injection site ulcer [Recovered/Resolved]
  - Injection site rash [Recovered/Resolved]
  - Periarthritis [Not Recovered/Not Resolved]
  - Injection site erythema [Recovered/Resolved]
  - Injection site erythema [Recovered/Resolved]
  - Injection site induration [Recovered/Resolved]
  - Injection site induration [Recovered/Resolved]
  - Injection site ulcer [Recovered/Resolved]

NARRATIVE: CASE EVENT DATE: 20191121
